FAERS Safety Report 6301103-7 (Version None)
Quarter: 2009Q3

REPORT INFORMATION
  Report Type: 
  Country: None (occurrence: None)
  Receive Date: 20090807
  Receipt Date: 20090803
  Transmission Date: 20100115
  Serious: Yes (Death, Hospitalization)
  Sender: FDA-Public Use
  Company Number: PHHY2009US29359

PATIENT
  Age: 83 Year
  Sex: Female

DRUGS (2)
  1. RECLAST [Suspect]
     Dosage: 5 MG, UNK
     Route: 042
  2. DIURETICS [Concomitant]

REACTIONS (2)
  - RENAL FAILURE [None]
  - RENAL IMPAIRMENT [None]
